FAERS Safety Report 7544977-4 (Version None)
Quarter: 2011Q2

REPORT INFORMATION
  Report Type: 
  Country: None (occurrence: None)
  Receive Date: 20110614
  Receipt Date: 20110520
  Transmission Date: 20111010
  Serious: Yes (Hospitalization, Other)
  Sender: FDA-Public Use
  Company Number: US-BAYER-200941039NA

PATIENT
  Age: 38 Year
  Sex: Female
  Weight: 64 kg

DRUGS (17)
  1. INTRAVAGINAL CONTRACEPTIVES [Concomitant]
     Dates: start: 20080128
  2. ZOFRAN [Concomitant]
     Dates: start: 20060501
  3. OXYCET [Concomitant]
  4. YAZ [Suspect]
     Indication: CONTRACEPTION
     Dosage: 1 DF (DAILY DOSE), QD, ORAL
     Route: 048
     Dates: start: 20040601, end: 20071203
  5. UNKNOWN DRUG [Concomitant]
     Indication: SINUS DISORDER
  6. CELEXA [Concomitant]
     Dates: start: 20040601
  7. WARFARIN SODIUM [Concomitant]
     Dates: start: 20071219, end: 20080306
  8. INTRAVAGINAL CONTRACEPTIVES [Concomitant]
     Dates: start: 20080128
  9. LEVAQUIN [Concomitant]
     Indication: PNEUMONIA
  10. ANALGESICS [Concomitant]
     Indication: NAUSEA
  11. XANAX [Concomitant]
  12. LOPRESSOR [Concomitant]
     Dates: start: 20040407
  13. ANALGESICS [Concomitant]
  14. SINUS MEDICATION [Concomitant]
  15. PERCOCET [Concomitant]
     Indication: PAIN
  16. UNKNOWN DRUG [Concomitant]
  17. CHANTIX [Concomitant]
     Indication: SMOKING CESSATION THERAPY
     Dosage: UNK
     Route: 048
     Dates: start: 20071130

REACTIONS (8)
  - PULMONARY EMBOLISM [None]
  - DYSPNOEA [None]
  - PAIN [None]
  - PLEURAL EFFUSION [None]
  - MUSCULOSKELETAL CHEST PAIN [None]
  - VENA CAVA THROMBOSIS [None]
  - PULMONARY INFARCTION [None]
  - ANXIETY [None]
